FAERS Safety Report 8328602-0 (Version None)
Quarter: 2012Q2

REPORT INFORMATION
  Report Type: 
  Country: None (occurrence: None)
  Receive Date: 20120502
  Receipt Date: 20100802
  Transmission Date: 20120825
  Serious: No
  Sender: FDA-Public Use
  Company Number: US-TEVA-2010004036

PATIENT
  Sex: Female
  Weight: 59.02 kg

DRUGS (4)
  1. TRILIPIX [Concomitant]
  2. NUVIGIL [Suspect]
     Indication: SOMNOLENCE
     Dosage: 150 MILLIGRAM;
     Route: 048
     Dates: start: 20100401, end: 20100801
  3. PREMARIN [Concomitant]
  4. CYMBALTA [Concomitant]

REACTIONS (3)
  - URINE OUTPUT DECREASED [None]
  - DRUG INEFFECTIVE FOR UNAPPROVED INDICATION [None]
  - HYPERHIDROSIS [None]
